FAERS Safety Report 4918972-5 (Version None)
Quarter: 2006Q1

REPORT INFORMATION
  Report Type: 
  Country: None (occurrence: None)
  Receive Date: 20060222
  Receipt Date: 20060217
  Transmission Date: 20060701
  Serious: Yes (Death, Hospitalization)
  Sender: FDA-Public Use
  Company Number: FR-GLAXOSMITHKLINE-B0412859A

PATIENT
  Age: 41 Year
  Sex: Female

DRUGS (1)
  1. AUGMENTIN '125' [Suspect]
     Indication: TOOTH ABSCESS
     Route: 048
     Dates: start: 20050311

REACTIONS (5)
  - CARDIAC ARREST [None]
  - DYSPNOEA [None]
  - MALAISE [None]
  - RESPIRATORY ARREST [None]
  - SYNCOPE [None]
